FAERS Safety Report 18254341 (Version 2)
Quarter: 2020Q3

REPORT INFORMATION
  Report Type: Spontaneous
  Country: US (occurrence: US)
  Receive Date: 20200910
  Receipt Date: 20200923
  Transmission Date: 20201103
  Serious: Yes (Hospitalization, Other)
  Sender: FDA-Public Use
  Company Number: US-ELITE LABORATORIES INC.-2020ELT00080

PATIENT
  Age: 74 Year
  Sex: Female
  Weight: 65.31 kg

DRUGS (14)
  1. TRIMIPRAMINE MALEATE. [Suspect]
     Active Substance: TRIMIPRAMINE MALEATE
     Indication: SLEEP DISORDER
     Dosage: 300 MG, 1X/DAY AT NIGHT BEFORE BEDTIME
     Route: 048
     Dates: start: 2019, end: 202007
  2. PYRIDOSTIGMINE [Concomitant]
     Active Substance: PYRIDOSTIGMINE
  3. ENTRESTO [Concomitant]
     Active Substance: SACUBITRIL\VALSARTAN
  4. TEMAZEPAM. [Concomitant]
     Active Substance: TEMAZEPAM
  5. ALBUTEROL. [Concomitant]
     Active Substance: ALBUTEROL
  6. ^STRONDOCTONE^ [Concomitant]
  7. UNSPECIFIED ^SLEEPING PILLS^ [Concomitant]
  8. INVOKANA [Concomitant]
     Active Substance: CANAGLIFLOZIN
  9. ^SOLISENACIN^ [Concomitant]
  10. METOPROLOL. [Concomitant]
     Active Substance: METOPROLOL
  11. ASPIRIN. [Concomitant]
     Active Substance: ASPIRIN
  12. ^TIVTIURM^ [Concomitant]
  13. MYRBETRIQ [Concomitant]
     Active Substance: MIRABEGRON
  14. ^LEVOTHPOMIN^ [Concomitant]

REACTIONS (13)
  - Malignant neoplasm of thymus [Recovered/Resolved]
  - Myasthenia gravis [Not Recovered/Not Resolved]
  - Cardiac failure congestive [Recovered/Resolved]
  - Drug ineffective for unapproved indication [Recovered/Resolved]
  - Diabetes mellitus [Unknown]
  - Respiratory disorder [Recovered/Resolved]
  - Scar [Not Recovered/Not Resolved]
  - Overdose [Recovered/Resolved]
  - Chronic obstructive pulmonary disease [Recovering/Resolving]
  - COVID-19 [Recovered/Resolved]
  - Lung neoplasm malignant [Recovered/Resolved]
  - Product substitution issue [Recovered/Resolved]
  - Insomnia [Recovered/Resolved]

NARRATIVE: CASE EVENT DATE: 201912
